FAERS Safety Report 11631116 (Version 1)
Quarter: 2015Q4

REPORT INFORMATION
  Report Type: Spontaneous
  Country: US (occurrence: US)
  Receive Date: 20151014
  Receipt Date: 20151014
  Transmission Date: 20160304
  Serious: No
  Sender: FDA-Public Use
  Company Number: US-009507513-1510USA000961

PATIENT
  Sex: Female

DRUGS (1)
  1. FOLLISTIM [Suspect]
     Active Substance: FOLLITROPIN
     Dosage: 100 IU, ONCE A DAY
     Dates: start: 20150922

REACTIONS (3)
  - Product colour issue [Unknown]
  - No adverse event [Unknown]
  - Poor quality drug administered [Unknown]
